FAERS Safety Report 9312266 (Version 1)
Quarter: 2013Q2

REPORT INFORMATION
  Report Type: Report from Study
  Country: US (occurrence: US)
  Receive Date: 20130528
  Receipt Date: 20130528
  Transmission Date: 20140414
  Serious: No
  Sender: FDA-Public Use
  Company Number: US-009507513-1305USA014798

PATIENT
  Sex: Female
  Weight: 58.96 kg

DRUGS (1)
  1. IMPLANON [Suspect]
     Dosage: UNK
     Route: 059
     Dates: start: 20130114, end: 20130523

REACTIONS (1)
  - Headache [Unknown]
